FAERS Safety Report 5140813-4 (Version None)
Quarter: 2006Q4

REPORT INFORMATION
  Report Type: 
  Country: None (occurrence: None)
  Receive Date: 20061026
  Receipt Date: 20061011
  Transmission Date: 20070319
  Serious: Yes (Hospitalization)
  Sender: FDA-Public Use
  Company Number: PHRM2006FR02823

PATIENT
  Age: 1 Day
  Sex: Female
  Weight: 3.3113 kg

DRUGS (5)
  1. VISUDYNE [Suspect]
     Dosage: 9.38 MG DAILY
     Dates: start: 20051202, end: 20051202
  2. CORTANCYL [Suspect]
     Dosage: 20 MG DAILY PO
     Route: 048
     Dates: start: 20051124, end: 20051201
  3. CORTANCYL [Suspect]
     Dosage: 10 MG DAILY PO
     Route: 048
     Dates: start: 20051202, end: 20051209
  4. CORTANCYL [Suspect]
     Dosage: 5 MG DAILY PO
     Route: 048
     Dates: start: 20051210, end: 20051217
  5. CORTANCYL [Suspect]
     Dosage: 5 MG DAILY PO
     Route: 048
     Dates: start: 20051218, end: 20051222

REACTIONS (3)
  - CONGENITAL DIAPHRAGMATIC HERNIA [None]
  - DRUG EXPOSURE DURING PREGNANCY [None]
  - NEONATAL RESPIRATORY DISTRESS SYNDROME [None]
